FAERS Safety Report 18882550 (Version 1)
Quarter: 2021Q1

REPORT INFORMATION
  Report Type: Spontaneous
  Country: US (occurrence: US)
  Receive Date: 20210211
  Receipt Date: 20210211
  Transmission Date: 20210420
  Serious: No
  Sender: FDA-Public Use
  Company Number: US-PERRIGO-20US008688

PATIENT
  Sex: Female
  Weight: 61.22 kg

DRUGS (3)
  1. TIZANIDINE                         /00740702/ [Suspect]
     Active Substance: TIZANIDINE HYDROCHLORIDE
     Indication: OCCIPITAL NEURALGIA
     Dosage: 4 MG, NIGHTLY
     Route: 048
     Dates: start: 202003, end: 202005
  2. TIZANIDINE                         /00740702/ [Suspect]
     Active Substance: TIZANIDINE HYDROCHLORIDE
     Dosage: 2 MG, NIGHTLY
     Route: 048
     Dates: start: 202005
  3. CETIRIZINE HYDROCHLORIDE. [Suspect]
     Active Substance: CETIRIZINE HYDROCHLORIDE
     Indication: PERENNIAL ALLERGY
     Dosage: 10 MG, NIGHTLY
     Route: 048
     Dates: start: 2017, end: 20200614

REACTIONS (2)
  - Product administered to patient of inappropriate age [Recovered/Resolved]
  - Dry mouth [Not Recovered/Not Resolved]

NARRATIVE: CASE EVENT DATE: 2017
